FAERS Safety Report 6827579-4 (Version None)
Quarter: 2010Q3

REPORT INFORMATION
  Report Type: 
  Country: None (occurrence: None)
  Receive Date: 20100709
  Receipt Date: 20070119
  Transmission Date: 20110219
  Serious: No
  Sender: FDA-Public Use
  Company Number: US-PFIZER INC-2007006130

PATIENT
  Age: 50 Year
  Sex: Female
  Weight: 54.43 kg

DRUGS (4)
  1. CHANTIX [Suspect]
     Indication: SMOKING CESSATION THERAPY
     Dates: start: 20070109
  2. DIPHENHYDRAMINE [Suspect]
     Indication: POOR QUALITY SLEEP
     Route: 048
  3. IBUPROFEN [Concomitant]
  4. TYLENOL PM [Concomitant]
     Indication: POOR QUALITY SLEEP

REACTIONS (5)
  - DRUG EFFECT DECREASED [None]
  - DRUG TOLERANCE [None]
  - FATIGUE [None]
  - NAUSEA [None]
  - SOMNOLENCE [None]
